FAERS Safety Report 22083602 (Version 2)
Quarter: 2023Q2

REPORT INFORMATION
  Report Type: Report from Study
  Country: US (occurrence: US)
  Receive Date: 20230310
  Receipt Date: 20230407
  Transmission Date: 20230722
  Serious: Yes (Other)
  Sender: FDA-Public Use
  Company Number: US-ABBVIE-4301105

PATIENT
  Sex: Male

DRUGS (2)
  1. IMBRUVICA [Suspect]
     Active Substance: IBRUTINIB
     Indication: Chronic lymphocytic leukaemia
     Route: 048
     Dates: start: 20220413, end: 20230301
  2. IMBRUVICA [Suspect]
     Active Substance: IBRUTINIB
     Indication: Chronic lymphocytic leukaemia
     Dosage: FIRST ADMIN DATE MAR 2023
     Route: 048
     Dates: end: 20230327

REACTIONS (6)
  - Atypical fibroxanthoma [Not Recovered/Not Resolved]
  - Eye contusion [Recovering/Resolving]
  - Lymphadenopathy [Unknown]
  - Post procedural haemorrhage [Recovering/Resolving]
  - Eye swelling [Recovering/Resolving]
  - Suture related complication [Unknown]

NARRATIVE: CASE EVENT DATE: 20230101
